FAERS Safety Report 6178137-9 (Version None)
Quarter: 2009Q2

REPORT INFORMATION
  Report Type: 
  Country: None (occurrence: None)
  Receive Date: 20090504
  Receipt Date: 20090422
  Transmission Date: 20091009
  Serious: Yes (Other)
  Sender: FDA-Public Use
  Company Number: PHNU2006DE04248

PATIENT
  Sex: Female

DRUGS (3)
  1. LAMISIL [Suspect]
     Indication: ONYCHOMYCOSIS
     Dosage: 1 DF, QD
     Route: 048
  2. SORTIS [Concomitant]
  3. BELOC-ZOK [Concomitant]

REACTIONS (3)
  - DEPRESSION [None]
  - NIGHT SWEATS [None]
  - RESTLESSNESS [None]
